FAERS Safety Report 6780225-0 (Version None)
Quarter: 2010Q2

REPORT INFORMATION
  Report Type: 
  Country: None (occurrence: None)
  Receive Date: 20100618
  Receipt Date: 20100518
  Transmission Date: 20101027
  Serious: No
  Sender: FDA-Public Use
  Company Number: US-ELI_LILLY_AND_COMPANY-US201005005275

PATIENT

DRUGS (1)
  1. OLANZAPINE [Suspect]

REACTIONS (1)
  - NEUTROPENIA [None]
